FAERS Safety Report 25547331 (Version 1)
Quarter: 2025Q3

REPORT INFORMATION
  Report Type: Spontaneous
  Country: GB (occurrence: EU)
  Receive Date: 20250714
  Receipt Date: 20250714
  Transmission Date: 20251020
  Serious: Yes (Other)
  Sender: Haleon PLC
  Company Number: EU-002147023-PHHY2018IE008708

PATIENT
  Sex: Female
  Weight: 1.5 kg

DRUGS (30)
  1. ACETAMINOPHEN [Suspect]
     Active Substance: ACETAMINOPHEN
     Indication: Foetal exposure during pregnancy
     Route: 064
  2. ACETAMINOPHEN [Suspect]
     Active Substance: ACETAMINOPHEN
     Route: 064
  3. ACETAMINOPHEN [Suspect]
     Active Substance: ACETAMINOPHEN
     Route: 054
  4. PROPOFOL [Suspect]
     Active Substance: PROPOFOL
     Indication: Induction of anaesthesia
     Route: 064
  5. PROPOFOL [Suspect]
     Active Substance: PROPOFOL
     Indication: Foetal exposure during pregnancy
     Route: 064
  6. PROPOFOL [Suspect]
     Active Substance: PROPOFOL
     Indication: Maintenance of anaesthesia
  7. ROCURONIUM BROMIDE [Suspect]
     Active Substance: ROCURONIUM BROMIDE
     Indication: Product used for unknown indication
     Route: 064
  8. LEVOBUPIVACAINE [Suspect]
     Active Substance: LEVOBUPIVACAINE
     Indication: Infiltration anaesthesia
     Route: 064
  9. LEVOBUPIVACAINE [Suspect]
     Active Substance: LEVOBUPIVACAINE
     Indication: Foetal exposure during pregnancy
  10. DICLOFENAC [Suspect]
     Active Substance: DICLOFENAC
     Indication: Foetal exposure during pregnancy
     Route: 054
  11. DICLOFENAC [Suspect]
     Active Substance: DICLOFENAC
     Route: 064
  12. EPINEPHRINE [Suspect]
     Active Substance: EPINEPHRINE
     Indication: Foetal exposure during pregnancy
     Route: 064
  13. OMEPRAZOLE [Suspect]
     Active Substance: OMEPRAZOLE
     Indication: Foetal exposure during pregnancy
     Route: 064
  14. OMEPRAZOLE [Suspect]
     Active Substance: OMEPRAZOLE
     Indication: Gastrooesophageal reflux disease
  15. SODIUM CITRATE [Suspect]
     Active Substance: SODIUM CITRATE
     Indication: Foetal exposure during pregnancy
     Route: 064
  16. ALPRAZOLAM [Suspect]
     Active Substance: ALPRAZOLAM
     Indication: Foetal exposure during pregnancy
     Dosage: 250 UG, BID (250 UG TWICE DAILY)
     Route: 064
  17. ALPRAZOLAM [Suspect]
     Active Substance: ALPRAZOLAM
     Indication: Anxiolytic therapy
  18. EPINEPHRINE\LIDOCAINE HYDROCHLORIDE [Suspect]
     Active Substance: EPINEPHRINE\LIDOCAINE HYDROCHLORIDE
     Indication: Infiltration anaesthesia
     Route: 064
  19. DICLOFENAC [Suspect]
     Active Substance: DICLOFENAC
     Indication: Foetal exposure during pregnancy
     Route: 064
  20. DEXMEDETOMIDINE [Suspect]
     Active Substance: DEXMEDETOMIDINE
     Indication: Anxiolytic therapy
     Route: 064
  21. DEXMEDETOMIDINE [Suspect]
     Active Substance: DEXMEDETOMIDINE
     Indication: Foetal exposure during pregnancy
  22. DEXMEDETOMIDINE [Suspect]
     Active Substance: DEXMEDETOMIDINE
  23. OXYGEN [Suspect]
     Active Substance: OXYGEN
     Indication: Foetal exposure during pregnancy
     Route: 064
  24. OXYGEN [Suspect]
     Active Substance: OXYGEN
     Route: 064
  25. OXYGEN [Suspect]
     Active Substance: OXYGEN
     Route: 064
  26. RANITIDINE HYDROCHLORIDE [Suspect]
     Active Substance: RANITIDINE HYDROCHLORIDE
     Indication: Foetal exposure during pregnancy
     Route: 064
  27. LIDOCAINE [Suspect]
     Active Substance: LIDOCAINE
     Indication: Foetal exposure during pregnancy
     Route: 064
  28. LIDOCAINE [Suspect]
     Active Substance: LIDOCAINE
     Indication: Foetal exposure during pregnancy
  29. DICLOFENAC SODIUM [Suspect]
     Active Substance: DICLOFENAC SODIUM
     Indication: Foetal exposure during pregnancy
     Route: 064
  30. ROCURONIUM [Suspect]
     Active Substance: ROCURONIUM BROMIDE
     Indication: Foetal exposure during pregnancy
     Route: 064

REACTIONS (4)
  - Premature baby [Unknown]
  - Low birth weight baby [Unknown]
  - Apgar score low [Unknown]
  - Foetal exposure during pregnancy [Unknown]
